FAERS Safety Report 11334597 (Version 1)
Quarter: 2015Q3

REPORT INFORMATION
  Report Type: Spontaneous
  Country: US (occurrence: US)
  Receive Date: 20150804
  Receipt Date: 20150804
  Transmission Date: 20151125
  Serious: No
  Sender: FDA-Public Use
  Company Number: US-ASTRAZENECA-2015SE72437

PATIENT
  Sex: Female

DRUGS (1)
  1. BYDUREON [Suspect]
     Active Substance: EXENATIDE
     Dosage: 2 MG, ONCE A WEEK, 4 COUNT VIAL
     Route: 058

REACTIONS (4)
  - Drug dispensing error [Unknown]
  - Underdose [Unknown]
  - Glycosylated haemoglobin increased [Unknown]
  - Product quality issue [Unknown]
